FAERS Safety Report 21340442 (Version 1)
Quarter: 2022Q3

REPORT INFORMATION
  Report Type: Spontaneous
  Country: US (occurrence: US)
  Receive Date: 20220916
  Receipt Date: 20220916
  Transmission Date: 20221027
  Serious: No
  Sender: FDA-Public Use
  Company Number: US-009507513-2208USA008804

PATIENT
  Age: 73 Year
  Sex: Female

DRUGS (1)
  1. BELSOMRA [Suspect]
     Active Substance: SUVOREXANT
     Indication: Insomnia
     Dosage: 15 MILLIGRAM, ONCE DAILY
     Route: 048
     Dates: start: 20220818, end: 20220821

REACTIONS (4)
  - Drug ineffective [Recovered/Resolved]
  - Contusion [Recovered/Resolved]
  - Nightmare [Recovered/Resolved]
  - Abnormal sleep-related event [Recovered/Resolved]

NARRATIVE: CASE EVENT DATE: 20220818
